FAERS Safety Report 6813711-5 (Version None)
Quarter: 2010Q3

REPORT INFORMATION
  Report Type: 
  Country: None (occurrence: None)
  Receive Date: 20100701
  Receipt Date: 20100621
  Transmission Date: 20110219
  Serious: Yes (Other)
  Sender: FDA-Public Use
  Company Number: ES-ABBOTT-10P-144-0652651-00

PATIENT
  Age: 1 Year
  Sex: Female

DRUGS (1)
  1. DEPAKINE CHRONO SUSPENSION [Suspect]
     Indication: EPILEPSY
     Route: 048
     Dates: start: 20100413

REACTIONS (2)
  - AGITATION [None]
  - TONIC CLONIC MOVEMENTS [None]
